FAERS Safety Report 16376535 (Version 2)
Quarter: 2019Q2

REPORT INFORMATION
  Report Type: Report from Study
  Country: None (occurrence: CH)
  Receive Date: 20190531
  Receipt Date: 20190619
  Transmission Date: 20190711
  Serious: Yes (Hospitalization, Other)
  Sender: FDA-Public Use
  Company Number: CH-ABBVIE-18S-151-2470972-00

PATIENT
  Age: 72 Year
  Sex: Male

DRUGS (3)
  1. DUODOPA [Suspect]
     Active Substance: CARBIDOPA\LEVODOPA
     Indication: PARKINSON^S DISEASE
     Dosage: 24H THERAPY
     Route: 050
     Dates: start: 20150618, end: 20170624
  2. DUODOPA [Suspect]
     Active Substance: CARBIDOPA\LEVODOPA
     Dosage: MD: 2ML;CD-DAY: 2.6ML/H; CD: 2.6ML/H; ED: 2.0ML,24H THERAPY
     Route: 050
     Dates: start: 20170624, end: 20171201
  3. DUODOPA [Suspect]
     Active Substance: CARBIDOPA\LEVODOPA
     Dosage: MD: 3ML; CD-DAY: 2.8ML/H; CD-NIGHT: 2.6ML/H; ED: 2.0ML,24H THERAPY
     Route: 050
     Dates: start: 20171201

REACTIONS (4)
  - On and off phenomenon [Not Recovered/Not Resolved]
  - Eye operation [Unknown]
  - Visual impairment [Unknown]
  - Device dislocation [Not Recovered/Not Resolved]

NARRATIVE: CASE EVENT DATE: 201808
